FAERS Safety Report 7383573-9 (Version None)
Quarter: 2011Q1

REPORT INFORMATION
  Report Type: 
  Country: None (occurrence: None)
  Receive Date: 20110328
  Receipt Date: 20110328
  Transmission Date: 20110831
  Serious: Yes (Disabling)
  Sender: FDA-Public Use
  Company Number: None

PATIENT
  Sex: Female

DRUGS (1)
  1. AMOX TR-K  CLV [Suspect]
     Dates: start: 20110316, end: 20110322

REACTIONS (1)
  - HYPERSENSITIVITY [None]
